FAERS Safety Report 8979037 (Version 2)
Quarter: 2012Q4

REPORT INFORMATION
  Report Type: 
  Country: US (occurrence: US)
  Receive Date: 20121221
  Receipt Date: 20121230
  Transmission Date: 20130627
  Serious: Yes (Other)
  Sender: FDA-Public Use
  Company Number: US-US-EMD SERONO, INC.-7183075

PATIENT
  Age: 58 Year
  Sex: Male
  Weight: 79 kg

DRUGS (4)
  1. EGRIFTA [Suspect]
     Indication: PRODUCT USED FOR UNKNOWN INDICATION
     Dates: end: 20121001
  2. PLAVIX [Concomitant]
     Indication: CORONARY ARTERY DISEASE
  3. ACYCLOVIR [Concomitant]
     Indication: PROPHYLAXIS
  4. ISENTRESS [Concomitant]
     Indication: HIV INFECTION

REACTIONS (2)
  - Insulin-like growth factor increased [Unknown]
  - Dyspnoea [Recovered/Resolved]
